FAERS Safety Report 18912215 (Version 2)
Quarter: 2021Q1

REPORT INFORMATION
  Report Type: Spontaneous
  Country: US (occurrence: US)
  Receive Date: 20210219
  Receipt Date: 20210304
  Transmission Date: 20210420
  Serious: Yes (Other)
  Sender: FDA-Public Use
  Company Number: US-009507513-2102USA002610

PATIENT
  Sex: Male

DRUGS (2)
  1. PFIZER?BIONTECH COVID?19 VACCINE [Suspect]
     Active Substance: TOZINAMERAN
     Dosage: FIRST DOSE
     Dates: start: 2021
  2. PRINIVIL [Suspect]
     Active Substance: LISINOPRIL
     Dosage: UNK
     Route: 048
     Dates: end: 1996

REACTIONS (4)
  - Cerebrovascular accident [Unknown]
  - Adverse event following immunisation [Unknown]
  - Drug hypersensitivity [Unknown]
  - Adverse event [Unknown]

NARRATIVE: CASE EVENT DATE: 2016
